FAERS Safety Report 18510186 (Version 2)
Quarter: 2020Q4

REPORT INFORMATION
  Report Type: Spontaneous
  Country: US (occurrence: US)
  Receive Date: 20201117
  Receipt Date: 20201204
  Transmission Date: 20210114
  Serious: No
  Sender: FDA-Public Use
  Company Number: US-GLAXOSMITHKLINE-US2020AMR225507

PATIENT
  Sex: Female

DRUGS (1)
  1. ZEJULA [Suspect]
     Active Substance: NIRAPARIB
     Indication: OVARIAN CANCER
     Dosage: 200 MG, QD
     Route: 048
     Dates: start: 20190611

REACTIONS (6)
  - Vomiting [Recovered/Resolved]
  - Eating disorder [Unknown]
  - Product dose omission in error [Unknown]
  - Constipation [Recovered/Resolved]
  - Ageusia [Unknown]
  - Nausea [Recovered/Resolved]
